FAERS Safety Report 8565193 (Version 4)
Quarter: 2013Q4

REPORT INFORMATION
  Report Type: Spontaneous
  Country: US (occurrence: US)
  Receive Date: 20120516
  Receipt Date: 20131223
  Transmission Date: 20140711
  Serious: Yes (Hospitalization, Other)
  Sender: FDA-Public Use
  Company Number: US-BAYER-2012-047585

PATIENT
  Age: 28 Year
  Sex: Female

DRUGS (3)
  1. YASMIN [Suspect]
     Dosage: UNK
     Dates: start: 200806, end: 200811
  2. YAZ [Suspect]
     Dosage: UNK
     Dates: start: 200806, end: 200811
  3. IBUPROFEN [Concomitant]
     Indication: MIGRAINE
     Dosage: 800 MG, UNK
     Dates: start: 20081124

REACTIONS (9)
  - Mesenteric vein thrombosis [Recovered/Resolved]
  - Ovarian vein thrombosis [None]
  - Injury [None]
  - Pain [Recovered/Resolved]
  - Emotional distress [None]
  - Anxiety [None]
  - Psychological trauma [None]
  - Anhedonia [None]
  - Fear [None]
